FAERS Safety Report 6911907-5 (Version None)
Quarter: 2010Q3

REPORT INFORMATION
  Report Type: 
  Country: None (occurrence: None)
  Receive Date: 20100806
  Receipt Date: 20071010
  Transmission Date: 20110219
  Serious: No
  Sender: FDA-Public Use
  Company Number: US-PFIZER INC-2007085186

PATIENT
  Sex: Male
  Weight: 112.94 kg

DRUGS (8)
  1. DETROL LA [Suspect]
     Indication: HYPERTONIC BLADDER
     Dates: start: 20071009
  2. CLARINEX [Concomitant]
  3. ATENOLOL [Concomitant]
     Indication: CARDIAC FLUTTER
  4. LISINOPRIL [Concomitant]
     Indication: HYPERTENSION
  5. LISINOPRIL [Concomitant]
     Indication: CARDIAC FLUTTER
  6. ACETYLSALICYLIC ACID SRT [Concomitant]
  7. SIMVASTATIN [Concomitant]
     Indication: BLOOD CHOLESTEROL INCREASED
  8. BUTALBITAL W/ ASPIRIN + CAFFEINE [Concomitant]
     Indication: MIGRAINE

REACTIONS (1)
  - ABDOMINAL PAIN UPPER [None]
